FAERS Safety Report 25084035 (Version 1)
Quarter: 2025Q1

REPORT INFORMATION
  Report Type: Spontaneous
  Country: US (occurrence: None)
  Receive Date: 20250314
  Receipt Date: 20250314
  Transmission Date: 20250409
  Serious: Yes (Death)
  Sender: FDA-CTU
  Company Number: None

PATIENT
  Age: 64 Year
  Sex: Male

DRUGS (2)
  1. MYCOPHENOLIC ACID [Suspect]
     Active Substance: MYCOPHENOLIC ACID
     Indication: Liver transplant
     Dosage: 180 MG BID ORAL ?
     Route: 048
     Dates: start: 20181012, end: 20250217
  2. CYCLOSPORINE [Suspect]
     Active Substance: CYCLOSPORINE
     Indication: Liver transplant
     Dosage: 75 MG TID ORAL
     Route: 048
     Dates: start: 20191012, end: 20250217

REACTIONS (1)
  - Death [None]

NARRATIVE: CASE EVENT DATE: 20250202
